FAERS Safety Report 6032577-7 (Version None)
Quarter: 2009Q1

REPORT INFORMATION
  Report Type: 
  Country: None (occurrence: None)
  Receive Date: 20090109
  Receipt Date: 20081230
  Transmission Date: 20090719
  Serious: Yes (Hospitalization, Other)
  Sender: FDA-Public Use
  Company Number: US-ROCHE-521366

PATIENT
  Sex: Male
  Weight: 72.6 kg

DRUGS (13)
  1. ACCUTANE [Suspect]
     Dosage: HE WAS GIVEN ACCUTANE 40 MG DAILY FOR 2 WEEKS THEN TWICE A DAY.
     Route: 048
     Dates: start: 20000614, end: 20000627
  2. ACCUTANE [Suspect]
     Route: 048
     Dates: start: 20000628, end: 20001030
  3. TETRACYCLIN [Concomitant]
     Indication: ACNE
  4. DOXYCYCLIN [Concomitant]
     Indication: ACNE
  5. RETIN-A [Concomitant]
     Indication: ACNE
     Dates: start: 20000216
  6. RETIN-A [Concomitant]
     Dates: start: 20000618
  7. DIFFERIN [Concomitant]
     Indication: ACNE
  8. DIFFERIN [Concomitant]
  9. MINOCIN [Concomitant]
     Dates: start: 20000216
  10. MINOCIN [Concomitant]
     Dates: start: 20000412
  11. DESQUAM-E [Concomitant]
     Dates: start: 20000216
  12. DESQUAM-E [Concomitant]
  13. KEFLEX [Concomitant]
     Dates: start: 20000518

REACTIONS (12)
  - ABDOMINAL PAIN [None]
  - ANXIETY [None]
  - CLOSTRIDIAL INFECTION [None]
  - CROHN'S DISEASE [None]
  - DEPRESSION [None]
  - GASTROINTESTINAL DISORDER [None]
  - HAEMATOCHEZIA [None]
  - ILEITIS [None]
  - INFLAMMATORY BOWEL DISEASE [None]
  - PNEUMONIA [None]
  - RECTAL HAEMORRHAGE [None]
  - SMALL INTESTINAL OBSTRUCTION [None]
